FAERS Safety Report 10153184 (Version 1)
Quarter: 2014Q2

REPORT INFORMATION
  Report Type: Spontaneous
  Country: US (occurrence: US)
  Receive Date: 20140505
  Receipt Date: 20140505
  Transmission Date: 20141212
  Serious: Yes (Hospitalization)
  Sender: FDA-Public Use
  Company Number: US-BAYER-2014-064699

PATIENT
  Age: 25 Year
  Sex: Female
  Weight: 69.84 kg

DRUGS (8)
  1. BEYAZ [Suspect]
     Indication: CONTRACEPTION
  2. BEYAZ [Suspect]
     Indication: MENSTRUAL CYCLE MANAGEMENT
  3. FERROUS SULFATE [Concomitant]
     Dosage: 220 MG/5 ML
     Route: 048
  4. ALLEGRA [Concomitant]
     Route: 048
  5. MULTIVITAMIN [Concomitant]
     Route: 048
  6. TORADOL [Concomitant]
     Indication: PAIN
  7. MORPHINE [Concomitant]
     Indication: PAIN
  8. DILAUDID [Concomitant]
     Indication: PAIN

REACTIONS (1)
  - Pulmonary embolism [Recovered/Resolved]
